FAERS Safety Report 4363122-X (Version None)
Quarter: 2004Q2

REPORT INFORMATION
  Report Type: 
  Country: None (occurrence: None)
  Receive Date: 20040518
  Receipt Date: 20040508
  Transmission Date: 20050107
  Serious: Yes (Hospitalization)
  Sender: FDA-Public Use
  Company Number: JP-JNJFOC-20040501716

PATIENT
  Age: 56 Year
  Sex: Female
  Weight: 45 kg

DRUGS (4)
  1. REMICADE [Suspect]
     Indication: RHEUMATOID ARTHRITIS
     Dosage: IN 1 AS NECESSARY, INTRAVENOUS DRIP; SEE IMAGE
     Route: 041
     Dates: start: 20030923, end: 20030923
  2. REMICADE [Suspect]
     Indication: RHEUMATOID ARTHRITIS
     Dosage: IN 1 AS NECESSARY, INTRAVENOUS DRIP; SEE IMAGE
     Route: 041
     Dates: start: 20040222, end: 20040222
  3. REMICADE [Suspect]
     Indication: RHEUMATOID ARTHRITIS
     Dosage: IN 1 AS NECESSARY, INTRAVENOUS DRIP; SEE IMAGE
     Route: 041
     Dates: start: 20040508, end: 20040508
  4. RHEUMATREX [Concomitant]

REACTIONS (4)
  - BLOOD BETA-D-GLUCAN INCREASED [None]
  - C-REACTIVE PROTEIN INCREASED [None]
  - PNEUMOCYSTIS CARINII INFECTION [None]
  - SPUTUM CULTURE POSITIVE [None]
